FAERS Safety Report 4400922-1 (Version None)
Quarter: 2004Q3

REPORT INFORMATION
  Report Type: 
  Country: None (occurrence: None)
  Receive Date: 20040907
  Receipt Date: 20030812
  Transmission Date: 20050211
  Serious: No
  Sender: FDA-Public Use
  Company Number: US-BRISTOL-MYERS SQUIBB COMPANY-12352977

PATIENT
  Age: 73 Year
  Sex: Female
  Weight: 68 kg

DRUGS (8)
  1. COUMADIN [Suspect]
     Indication: AORTIC VALVE REPLACEMENT
     Dosage: DOSAGE: VARIES.  PRESENTLY 7.5 MG MON AND FRI, ALTER. WITH 10MG (2 5 MG TABS) THE OTHER DAYS.
     Route: 048
     Dates: start: 19890101
  2. COUMADIN [Suspect]
     Indication: HEART VALVE REPLACEMENT
     Dosage: DOSAGE: VARIES.  PRESENTLY 7.5 MG MON AND FRI, ALTER. WITH 10MG (2 5 MG TABS) THE OTHER DAYS.
     Route: 048
     Dates: start: 19890101
  3. ACCUPRIL [Concomitant]
  4. COREG [Concomitant]
  5. GLUCOPHAGE [Concomitant]
  6. FUROSEMIDE [Concomitant]
  7. POTASSIUM [Concomitant]
  8. MULTIVITAMIN [Concomitant]

REACTIONS (1)
  - INTERNATIONAL NORMALISED RATIO DECREASED [None]
